FAERS Safety Report 7462151-7 (Version None)
Quarter: 2011Q2

REPORT INFORMATION
  Report Type: 
  Country: None (occurrence: None)
  Receive Date: 20110506
  Receipt Date: 20091226
  Transmission Date: 20111010
  Serious: Yes (Other)
  Sender: FDA-Public Use
  Company Number: US-BAYER-200943396NA

PATIENT
  Age: 69 Year
  Sex: Female
  Weight: 97.506 kg

DRUGS (6)
  1. GLIPIZIDE [Concomitant]
  2. TRASYLOL [Suspect]
     Indication: CORONARY ARTERY BYPASS
     Dosage: UNK
     Route: 042
     Dates: start: 20000426
  3. PLAVIX [Concomitant]
  4. CLARITIN [Concomitant]
     Dosage: UNK
  5. HUMULIN [INSULIN HUMAN] [Concomitant]
  6. LASIX [Concomitant]

REACTIONS (4)
  - INJURY [None]
  - PAIN [None]
  - RENAL FAILURE [None]
  - UNEVALUABLE EVENT [None]
